FAERS Safety Report 22036915 (Version 1)
Quarter: 2023Q1

REPORT INFORMATION
  Report Type: Spontaneous
  Country: UA (occurrence: UA)
  Receive Date: 20230225
  Receipt Date: 20230225
  Transmission Date: 20230417
  Serious: Yes (Hospitalization)
  Sender: FDA-Public Use
  Company Number: UA-STRIDES ARCOLAB LIMITED-2023SP002930

PATIENT
  Age: 57 Year
  Sex: Female

DRUGS (3)
  1. ZOLPIDEM [Suspect]
     Active Substance: ZOLPIDEM TARTRATE
     Indication: Migraine without aura
     Dosage: 5 MILLIGRAM
     Route: 065
  2. ZOLMITRIPTAN [Suspect]
     Active Substance: ZOLMITRIPTAN
     Indication: Migraine without aura
     Dosage: 5 MILLIGRAM
     Route: 065
  3. METOCLOPRAMIDE [Suspect]
     Active Substance: METOCLOPRAMIDE
     Indication: Migraine without aura
     Dosage: 2 MILLILITER
     Route: 030

REACTIONS (3)
  - Haemorrhagic stroke [Recovered/Resolved]
  - Subdural haematoma [Recovered/Resolved]
  - Drug ineffective for unapproved indication [Unknown]
